FAERS Safety Report 21202113 (Version 1)
Quarter: 2022Q3

REPORT INFORMATION
  Report Type: Spontaneous
  Country: US (occurrence: US)
  Receive Date: 20220811
  Receipt Date: 20220811
  Transmission Date: 20221027
  Serious: No
  Sender: FDA-Public Use
  Company Number: US-ANIPHARMA-2022-US-017247

PATIENT
  Age: 47 Year
  Sex: Female
  Weight: 55.79 kg

DRUGS (1)
  1. CORTICOTROPIN [Suspect]
     Active Substance: CORTICOTROPIN
     Indication: Multiple sclerosis
     Dosage: INJECT 80 UNITS IM DAILY, BACK OF THE ARM
     Route: 030
     Dates: start: 20220706

REACTIONS (4)
  - Constipation [Unknown]
  - Insomnia [Not Recovered/Not Resolved]
  - Weight increased [Not Recovered/Not Resolved]
  - Oedema [Not Recovered/Not Resolved]

NARRATIVE: CASE EVENT DATE: 20220706
